FAERS Safety Report 14245747 (Version 1)
Quarter: 2017Q4

REPORT INFORMATION
  Report Type: Report from Study
  Country: US (occurrence: US)
  Receive Date: 20171204
  Receipt Date: 20171204
  Transmission Date: 20180321
  Serious: Yes (Other)
  Sender: FDA-Public Use
  Company Number: US-AMGEN-USASL2017177875

PATIENT
  Sex: Female

DRUGS (1)
  1. REPATHA [Suspect]
     Active Substance: EVOLOCUMAB
     Indication: BLOOD CHOLESTEROL INCREASED
     Dosage: 140 MG, Q2WK
     Route: 065
     Dates: start: 20171108

REACTIONS (13)
  - Dizziness [Unknown]
  - Headache [Unknown]
  - Leukocytosis [Unknown]
  - Abdominal pain [Unknown]
  - Influenza like illness [Unknown]
  - Back pain [Unknown]
  - Decreased immune responsiveness [Unknown]
  - Nausea [Unknown]
  - Red blood cell count abnormal [Unknown]
  - Sciatica [Unknown]
  - Rhinorrhoea [Unknown]
  - Pain [Unknown]
  - Blood sodium decreased [Unknown]

NARRATIVE: CASE EVENT DATE: 201711
